FAERS Safety Report 21843537 (Version 3)
Quarter: 2023Q1

REPORT INFORMATION
  Report Type: Spontaneous
  Country: JP (occurrence: JP)
  Receive Date: 20230110
  Receipt Date: 20230123
  Transmission Date: 20230418
  Serious: Yes (Life-Threatening, Hospitalization, Other)
  Sender: FDA-Public Use
  Company Number: JP-MLMSERVICE-20230102-3312256-1

PATIENT
  Age: 77 Year
  Sex: Male

DRUGS (4)
  1. CLOPIDOGREL BISULFATE [Suspect]
     Active Substance: CLOPIDOGREL BISULFATE
     Indication: Peripheral arterial occlusive disease
     Dosage: 75 MG, QD
     Route: 065
  2. CLOPIDOGREL BISULFATE [Suspect]
     Active Substance: CLOPIDOGREL BISULFATE
     Dosage: 75 MG, QD
     Route: 065
  3. RIVAROXABAN [Suspect]
     Active Substance: RIVAROXABAN
     Indication: Atrial fibrillation
     Dosage: 10 MG, QD MORNING
     Route: 065
  4. RIVAROXABAN [Suspect]
     Active Substance: RIVAROXABAN
     Dosage: 10 MG, QD, MORNING
     Route: 065

REACTIONS (10)
  - Vascular pseudoaneurysm [Recovered/Resolved]
  - Shock haemorrhagic [Recovered/Resolved]
  - Condition aggravated [Recovered/Resolved]
  - Loss of consciousness [Recovered/Resolved]
  - Hypotension [Recovered/Resolved]
  - Arterial haemorrhage [Recovered/Resolved]
  - Haemoperitoneum [Recovered/Resolved]
  - Abdominal pain upper [Recovered/Resolved]
  - Abdominal tenderness [Recovered/Resolved]
  - Abdominal distension [Recovered/Resolved]
